FAERS Safety Report 8767253 (Version 4)
Quarter: 2012Q4

REPORT INFORMATION
  Report Type: 
  Country: JP (occurrence: JP)
  Receive Date: 20120904
  Receipt Date: 20121015
  Transmission Date: 20130627
  Serious: Yes (Hospitalization)
  Sender: FDA-Public Use
  Company Number: JP-GLAXOSMITHKLINE-B0821897A

PATIENT
  Age: 78 None
  Sex: Female
  Weight: 56 kg

DRUGS (12)
  1. PAXIL [Suspect]
     Indication: DEPRESSION
     Dosage: 10MG Per day
     Route: 048
     Dates: start: 2010, end: 20120722
  2. PAXIL [Suspect]
     Indication: DEPRESSION
     Dosage: 10MG Per day
     Route: 048
     Dates: start: 20120811, end: 20120816
  3. PAXIL [Suspect]
     Indication: DEPRESSION
     Dosage: 10MG Per day
     Route: 048
     Dates: start: 20120817
  4. PAXIL [Suspect]
     Indication: DEPRESSION
     Dosage: 12.5MG Per day
     Route: 048
     Dates: start: 20120723, end: 20120806
  5. ARTIST [Concomitant]
     Indication: CARDIAC FAILURE
     Dosage: 2.5MG Per day
     Route: 048
     Dates: start: 1982
  6. FUROSEMIDE [Concomitant]
     Indication: CARDIAC FAILURE
     Dosage: 40MG Per day
     Route: 048
     Dates: start: 1982
  7. ALDACTONE A [Concomitant]
     Indication: CARDIAC FAILURE
     Dosage: 25MG Per day
     Route: 048
     Dates: start: 1982
  8. WARFARIN [Concomitant]
     Indication: ATRIAL FIBRILLATION
     Dosage: 1.25MG Per day
     Route: 048
     Dates: start: 1982
  9. PANALDINE [Concomitant]
     Indication: ATRIAL FIBRILLATION
     Dosage: 100MG Twice per day
     Route: 048
     Dates: start: 1982
  10. NORVASC [Concomitant]
     Indication: HYPERTENSION
     Dosage: 2.5MG Per day
     Route: 048
     Dates: start: 1982
  11. OMEPRAL [Concomitant]
     Indication: GASTROOESOPHAGEAL REFLUX DISEASE
     Dosage: 10MG Per day
     Route: 048
     Dates: start: 1982
  12. AMOBAN [Concomitant]
     Indication: INSOMNIA
     Dosage: 7.5MG Per day
     Route: 048
     Dates: start: 1982

REACTIONS (12)
  - Tremor [Recovered/Resolved]
  - Tremor [Recovered/Resolved]
  - Hypokinesia [Recovering/Resolving]
  - Fall [Unknown]
  - Wrist fracture [Unknown]
  - Extrapyramidal disorder [Recovered/Resolved]
  - Malaise [Unknown]
  - Gait disturbance [Unknown]
  - Sensation of heaviness [Unknown]
  - Depressive symptom [Unknown]
  - Fatigue [Unknown]
  - Drug level increased [Unknown]
